FAERS Safety Report 11058970 (Version 1)
Quarter: 2015Q2

REPORT INFORMATION
  Report Type: Spontaneous
  Country: US (occurrence: None)
  Receive Date: 20150420
  Receipt Date: 20150420
  Transmission Date: 20150821
  Serious: No
  Sender: FDA-Public Use
  Company Number: AEGR001136

PATIENT
  Age: 60 Year
  Sex: Female

DRUGS (5)
  1. METAMUCIL (PSY7LLIUM HYDROPHILIC MUCILLOID) [Concomitant]
  2. JUXTAPID [Suspect]
     Active Substance: LOMITAPIDE MESYLATE
     Indication: TYPE IIA HYPERLIPIDAEMIA
     Route: 048
     Dates: start: 20150104, end: 20150119
  3. FISH OIL [Concomitant]
     Active Substance: FISH OIL
  4. WELCHOL (COLESEVELAM HYDROCHLORIDE) (625 MILLIGRAM, TABLET) (COLESEVELAM HYDROCHLORIDE) [Concomitant]
     Active Substance: COLESEVELAM HYDROCHLORIDE
  5. NIACIN (NICONTINIC ACID) [Concomitant]

REACTIONS (6)
  - Constipation [None]
  - Low density lipoprotein increased [None]
  - Diarrhoea [None]
  - Insomnia [None]
  - High density lipoprotein decreased [None]
  - Therapy cessation [None]

NARRATIVE: CASE EVENT DATE: 201501
